FAERS Safety Report 4908762-1 (Version None)
Quarter: 2006Q1

REPORT INFORMATION
  Report Type: 
  Country: None (occurrence: None)
  Receive Date: 20060210
  Receipt Date: 20051114
  Transmission Date: 20060701
  Serious: No
  Sender: FDA-Public Use
  Company Number: US-GLAXOSMITHKLINE-A0582172A

PATIENT
  Age: 46 Year
  Sex: Female

DRUGS (2)
  1. PAXIL CR [Suspect]
     Dosage: 37.5MG PER DAY
     Route: 048
     Dates: start: 20051107
  2. NO CONCURRENT MEDICATION [Concomitant]

REACTIONS (8)
  - AGITATION [None]
  - CRYING [None]
  - DEPRESSION [None]
  - HEADACHE [None]
  - NAUSEA [None]
  - PAIN IN JAW [None]
  - PELVIC PAIN [None]
  - TRISMUS [None]
